FAERS Safety Report 5856489-4 (Version None)
Quarter: 2008Q3

REPORT INFORMATION
  Report Type: 
  Country: None (occurrence: None)
  Receive Date: 20080825
  Receipt Date: 20080728
  Transmission Date: 20090109
  Serious: No
  Sender: FDA-Public Use
  Company Number: A0732079A

PATIENT
  Age: 55 Year
  Sex: Female

DRUGS (2)
  1. VERAMYST [Suspect]
     Indication: MULTIPLE ALLERGIES
     Dosage: 4SPR PER DAY
     Route: 045
     Dates: start: 20080101, end: 20080501
  2. ADVIL COLD AND SINUS [Concomitant]

REACTIONS (5)
  - DYSGEUSIA [None]
  - FUNGAL INFECTION [None]
  - HEADACHE [None]
  - PAROSMIA [None]
  - PHARMACEUTICAL PRODUCT COMPLAINT [None]
